FAERS Safety Report 18996473 (Version 1)
Quarter: 2021Q1

REPORT INFORMATION
  Report Type: Spontaneous
  Country: US (occurrence: US)
  Receive Date: 20210311
  Receipt Date: 20210311
  Transmission Date: 20210420
  Serious: Yes (Death, Other)
  Sender: FDA-Public Use
  Company Number: US-SA-2021SA081137

PATIENT
  Age: 53 Year
  Sex: Male

DRUGS (1)
  1. ZANTAC [Suspect]
     Active Substance: RANITIDINE HYDROCHLORIDE
     Indication: DYSPEPSIA
     Dosage: 150 MG, QD
     Dates: start: 199501, end: 201501

REACTIONS (4)
  - Gastric cancer stage IV [Fatal]
  - Colorectal cancer stage III [Fatal]
  - Bladder cancer stage IV [Unknown]
  - Pelvic neoplasm [Fatal]

NARRATIVE: CASE EVENT DATE: 20160401
